FAERS Safety Report 20699973 (Version 1)
Quarter: 2022Q2

REPORT INFORMATION
  Report Type: Other
  Country: TR (occurrence: None)
  Receive Date: 20220412
  Receipt Date: 20220412
  Transmission Date: 20220720
  Serious: Yes (Other)
  Sender: FDA-Public Use
  Company Number: TR-ROCHE-3068631

PATIENT
  Age: 60 Year
  Sex: Female

DRUGS (1)
  1. BEVACIZUMAB [Suspect]
     Active Substance: BEVACIZUMAB
     Indication: Tractional retinal detachment
     Route: 050

REACTIONS (3)
  - Endophthalmitis [Unknown]
  - Off label use [Unknown]
  - Off label use [Unknown]
